FAERS Safety Report 22058783 (Version 2)
Quarter: 2023Q1

REPORT INFORMATION
  Report Type: Report from Study
  Country: JP (occurrence: JP)
  Receive Date: 20230303
  Receipt Date: 20230328
  Transmission Date: 20230417
  Serious: Yes (Other)
  Sender: FDA-Public Use
  Company Number: JP-AMGEN-JPNNI2023037391

PATIENT
  Age: 36 Year
  Sex: Female

DRUGS (6)
  1. APREMILAST [Suspect]
     Active Substance: APREMILAST
     Indication: Behcet^s syndrome
     Dosage: 10 MILLIGRAM, QD
     Route: 048
     Dates: start: 20220105, end: 20220105
  2. APREMILAST [Suspect]
     Active Substance: APREMILAST
     Indication: Mouth ulceration
     Dosage: 20 MILLIGRAM, DAILY (TWO DIVIDED DOSES)
     Route: 048
     Dates: start: 20220106, end: 20220106
  3. APREMILAST [Suspect]
     Active Substance: APREMILAST
     Dosage: 30 MILLIGRAM,DAILY (TWO DIVIDED DOSES)
     Route: 048
     Dates: start: 20220107, end: 20220107
  4. APREMILAST [Suspect]
     Active Substance: APREMILAST
     Dosage: 40 MILLIGRAM,DAILY (TWO DIVIDED DOSES)
     Route: 048
     Dates: start: 20220108, end: 20220108
  5. APREMILAST [Suspect]
     Active Substance: APREMILAST
     Dosage: 50 MILLIGRAM,DAILY (TWO DIVIDED DOSES)
     Route: 048
     Dates: start: 20220109, end: 20220109
  6. APREMILAST [Suspect]
     Active Substance: APREMILAST
     Dosage: 60 MILLIGRAM,DAILY (TWO DIVIDED DOSES)
     Route: 048
     Dates: start: 20220110, end: 20220210

REACTIONS (5)
  - Pyelonephritis [Recovered/Resolved]
  - Nausea [Recovered/Resolved]
  - Diarrhoea [Recovered/Resolved]
  - Aphthous ulcer [Not Recovered/Not Resolved]
  - Arthritis [Recovered/Resolved]

NARRATIVE: CASE EVENT DATE: 20220114
